FAERS Safety Report 7380686-2 (Version None)
Quarter: 2011Q1

REPORT INFORMATION
  Report Type: 
  Country: None (occurrence: None)
  Receive Date: 20110329
  Receipt Date: 20110323
  Transmission Date: 20110831
  Serious: Yes (Other)
  Sender: FDA-Public Use
  Company Number: SI-JNJFOC-20110311008

PATIENT

DRUGS (3)
  1. SOLU-MEDROL [Concomitant]
  2. CAELYX [Suspect]
     Indication: PRODUCT USED FOR UNKNOWN INDICATION
     Route: 042
  3. TAVEGIL [Concomitant]

REACTIONS (3)
  - FLUSHING [None]
  - FEELING HOT [None]
  - INFUSION RELATED REACTION [None]
